FAERS Safety Report 26010397 (Version 1)
Quarter: 2025Q4

REPORT INFORMATION
  Report Type: Report from Study
  Country: EU (occurrence: EU)
  Receive Date: 20251107
  Receipt Date: 20251107
  Transmission Date: 20260117
  Serious: Yes (Death, Hospitalization)
  Sender: DAIICHI
  Company Number: EU-DSJP-DS-2025-138694-SE

PATIENT
  Age: 75 Year
  Sex: Female
  Weight: 157 kg

DRUGS (15)
  1. ENHERTU [Suspect]
     Active Substance: FAM-TRASTUZUMAB DERUXTECAN-NXKI
     Indication: HER2 low breast cancer
     Dosage: 4.4 MG/KG, CYCLIC (5TH LINE)
     Route: 065
     Dates: start: 20250317, end: 20250317
  2. ENHERTU [Suspect]
     Active Substance: FAM-TRASTUZUMAB DERUXTECAN-NXKI
     Indication: Breast cancer metastatic
     Dosage: 4.4 MG/KG, CYCLIC (5TH LINE)
     Route: 065
     Dates: start: 20250514, end: 20250514
  3. BETAMETHASONE [Concomitant]
     Active Substance: BETAMETHASONE
     Indication: Prophylaxis of nausea and vomiting
     Dosage: 8 MG EVERY TREATMENT DAY
     Route: 048
     Dates: start: 20250317
  4. ONDANSETRON [Concomitant]
     Active Substance: ONDANSETRON
     Indication: Prophylaxis of nausea and vomiting
     Dosage: 16 MG EVERY TREATMENT DAY
     Route: 048
     Dates: start: 20250317
  5. ONDANSETRON [Concomitant]
     Active Substance: ONDANSETRON
     Dosage: 8 MG EVENING ON TREATMENT DAY
     Route: 048
     Dates: start: 20250317
  6. ONDANSETRON [Concomitant]
     Active Substance: ONDANSETRON
     Dosage: 8 MG EVENING THE DAY AFTER TREATMENT DAY
     Route: 048
     Dates: start: 20250317
  7. OMEPRAZOLE [Concomitant]
     Active Substance: OMEPRAZOLE
     Indication: Dyspepsia
     Dosage: 20 MG, QD
     Route: 048
     Dates: start: 20230505
  8. CYANOCOBALAMIN [Concomitant]
     Active Substance: CYANOCOBALAMIN
     Indication: Vitamin B12 deficiency
     Dosage: 1 MG, QD
     Route: 048
     Dates: start: 20200924
  9. CYANOCOBALAMIN [Concomitant]
     Active Substance: CYANOCOBALAMIN
     Indication: Prophylaxis
  10. FOLIC ACID [Concomitant]
     Active Substance: FOLIC ACID
     Indication: Folate deficiency
     Dosage: 1 MG, QD
     Route: 048
     Dates: start: 20230302
  11. FOLIC ACID [Concomitant]
     Active Substance: FOLIC ACID
     Indication: Prophylaxis
  12. CIPROFLOXACIN [Concomitant]
     Active Substance: CIPROFLOXACIN
     Indication: Urinary tract infection
     Dosage: 500 MG, BID
     Route: 048
     Dates: start: 20250411, end: 20250418
  13. CARBIDOPA\LEVODOPA [Concomitant]
     Active Substance: CARBIDOPA\LEVODOPA
     Indication: Parkinson^s disease
     Dosage: 162 MG, QD
     Route: 048
     Dates: start: 20240404
  14. CARBIDOPA\LEVODOPA [Concomitant]
     Active Substance: CARBIDOPA\LEVODOPA
     Dosage: 100 MG, QD
     Route: 048
     Dates: start: 20240527
  15. NITROFURANTOIN [Concomitant]
     Active Substance: NITROFURANTOIN
     Indication: Prophylaxis urinary tract infection
     Dosage: 50 MG, QD
     Route: 048
     Dates: start: 20250513

REACTIONS (10)
  - Condition aggravated [Fatal]
  - General physical health deterioration [Recovered/Resolved]
  - Cognitive disorder [Recovering/Resolving]
  - Diarrhoea [Recovered/Resolved]
  - Thrombocytopenia [Recovering/Resolving]
  - Decreased appetite [Recovering/Resolving]
  - Hypokalaemia [Recovered/Resolved]
  - Ascites [Recovering/Resolving]
  - Pleural effusion [Recovering/Resolving]
  - Anaemia [Recovering/Resolving]

NARRATIVE: CASE EVENT DATE: 20250425
